FAERS Safety Report 12332450 (Version 1)
Quarter: 2016Q2

REPORT INFORMATION
  Report Type: Spontaneous
  Country: US (occurrence: US)
  Receive Date: 20160504
  Receipt Date: 20160504
  Transmission Date: 20160815
  Serious: No
  Sender: FDA-Public Use
  Company Number: US-ROCHE-1670633

PATIENT
  Sex: Female
  Weight: 79.45 kg

DRUGS (2)
  1. ESBRIET [Suspect]
     Active Substance: PIRFENIDONE
     Indication: IDIOPATHIC PULMONARY FIBROSIS
     Dosage: 3 CAPSULES BY MOUTH THREE TIMES A DAY WITH FOOD.
     Route: 048
     Dates: start: 20150930
  2. ESBRIET [Suspect]
     Active Substance: PIRFENIDONE
     Dosage: DECREASED THE DOSE FROM 9 CAPSULES PER DAY TO 6 CAPSULES PER DAY.
     Route: 048

REACTIONS (4)
  - Bone pain [Unknown]
  - Vomiting [Unknown]
  - Nausea [Unknown]
  - Productive cough [Unknown]
